FAERS Safety Report 6271315-X (Version None)
Quarter: 2009Q3

REPORT INFORMATION
  Report Type: 
  Country: None (occurrence: None)
  Receive Date: 20090716
  Receipt Date: 20090716
  Transmission Date: 20100115
  Serious: Yes (Disabling, Other)
  Sender: FDA-Public Use
  Company Number: None

PATIENT
  Age: 21 Year
  Sex: Female
  Weight: 51.2565 kg

DRUGS (2)
  1. QUININE [Suspect]
     Indication: MALARIA
     Dosage: 10 MG/KG 2XPER DAY PO
     Route: 048
     Dates: start: 20090705, end: 20090709
  2. DOXYCYCLINE [Suspect]
     Indication: SEPSIS
     Dosage: 100 MG/KG 2XPER DAY PO
     Route: 048
     Dates: start: 20090705, end: 20090716

REACTIONS (7)
  - DIZZINESS [None]
  - HYPOACUSIS [None]
  - HYPOPHAGIA [None]
  - MOBILITY DECREASED [None]
  - NAUSEA [None]
  - PLEURAL EFFUSION [None]
  - VOMITING [None]
